FAERS Safety Report 18354026 (Version 4)
Quarter: 2020Q4

REPORT INFORMATION
  Report Type: Spontaneous
  Country: US (occurrence: US)
  Receive Date: 20201006
  Receipt Date: 20201113
  Transmission Date: 20210114
  Serious: Yes (Hospitalization, Other)
  Sender: FDA-Public Use
  Company Number: US-BAXTER-2020BAX020301

PATIENT
  Age: 54 Year
  Sex: Female
  Weight: 69.45 kg

DRUGS (12)
  1. CYTARABINE. [Suspect]
     Active Substance: CYTARABINE
     Dosage: 2 CYCLES OF CYTARABINE 2000 MG/M2 Q12H ON DAY 1 TO DAY 2
     Route: 065
     Dates: start: 20191026
  2. IFOSFAMIDE FOR INJECTION [Suspect]
     Active Substance: IFOSFAMIDE
     Indication: HIGH-GRADE B-CELL LYMPHOMA
     Dosage: 2 CYCLES OF 1500 MG/M2 DAY 1 TO DAY 5
     Route: 065
     Dates: start: 20191026
  3. HYDROXYCHLOROQUINE [Concomitant]
     Active Substance: HYDROXYCHLOROQUINE
     Indication: SYSTEMIC LUPUS ERYTHEMATOSUS
     Route: 065
  4. RASBURICASE [Concomitant]
     Active Substance: RASBURICASE
     Indication: TUMOUR LYSIS SYNDROME
     Route: 065
  5. DOXIL [Suspect]
     Active Substance: DOXORUBICIN HYDROCHLORIDE
     Indication: HIGH-GRADE B-CELL LYMPHOMA
     Route: 065
  6. RITUXIMAB. [Suspect]
     Active Substance: RITUXIMAB
     Indication: HIGH-GRADE B-CELL LYMPHOMA
     Route: 065
  7. HYDROCORTISONE. [Concomitant]
     Active Substance: HYDROCORTISONE
     Indication: PRODUCT USED FOR UNKNOWN INDICATION
     Route: 037
  8. CYCLOPHOSPHAMIDE FOR INJECTION, USP [Suspect]
     Active Substance: CYCLOPHOSPHAMIDE
     Indication: HIGH-GRADE B-CELL LYMPHOMA
     Route: 065
  9. CYTARABINE. [Suspect]
     Active Substance: CYTARABINE
     Indication: HIGH-GRADE B-CELL LYMPHOMA
     Route: 037
     Dates: start: 20191025
  10. VINCRISTINE [Suspect]
     Active Substance: VINCRISTINE
     Indication: HIGH-GRADE B-CELL LYMPHOMA
     Route: 065
  11. ETOPOSIDE. [Suspect]
     Active Substance: ETOPOSIDE
     Indication: HIGH-GRADE B-CELL LYMPHOMA
     Dosage: 2 CYCLES OF 60 MG/M2 DAY 1 TO DAY 5
     Route: 065
     Dates: start: 20191026
  12. METHOTREXATE. [Suspect]
     Active Substance: METHOTREXATE
     Indication: HIGH-GRADE B-CELL LYMPHOMA
     Route: 039
     Dates: start: 20191025

REACTIONS (3)
  - Neurotoxicity [Recovered/Resolved]
  - Subdural hygroma [Recovered/Resolved]
  - Febrile neutropenia [Recovered/Resolved]

NARRATIVE: CASE EVENT DATE: 20191029
